FAERS Safety Report 15483408 (Version 1)
Quarter: 2018Q4

REPORT INFORMATION
  Report Type: Spontaneous
  Country: DK (occurrence: DK)
  Receive Date: 20181010
  Receipt Date: 20181010
  Transmission Date: 20190205
  Serious: Yes (Life-Threatening)
  Sender: FDA-Public Use
  Company Number: DK-TEVA-2018-DK-962826

PATIENT
  Age: 85 Year
  Sex: Male
  Weight: 72 kg

DRUGS (1)
  1. BICALUTAMIDE ^TEVA^ [Suspect]
     Active Substance: BICALUTAMIDE
     Indication: PROSTATE CANCER
     Dosage: 150 MILLIGRAM DAILY;
     Route: 048
     Dates: start: 20180123, end: 20180622

REACTIONS (1)
  - Aplastic anaemia [Recovered/Resolved with Sequelae]

NARRATIVE: CASE EVENT DATE: 20180220
